FAERS Safety Report 11741249 (Version 4)
Quarter: 2016Q2

REPORT INFORMATION
  Report Type: Spontaneous
  Country: US (occurrence: US)
  Receive Date: 20151116
  Receipt Date: 20160509
  Transmission Date: 20160815
  Serious: Yes (Other)
  Sender: FDA-Public Use
  Company Number: US-UCBSA-2015035893

PATIENT
  Age: 71 Year
  Sex: Male
  Weight: 82 kg

DRUGS (6)
  1. FINASTERIDE. [Concomitant]
     Active Substance: FINASTERIDE
     Indication: PROSTATOMEGALY
     Dosage: 5 MG, ONCE DAILY (QD)
     Route: 048
     Dates: start: 20150619
  2. LISINOPRIL. [Concomitant]
     Active Substance: LISINOPRIL
     Indication: BLOOD PRESSURE INCREASED
     Dosage: 10 MG, ONCE DAILY (QD)
     Route: 048
  3. RAPAFLO [Concomitant]
     Active Substance: SILODOSIN
     Indication: PROSTATOMEGALY
     Dosage: UNK
     Dates: start: 2015
  4. CIMZIA [Suspect]
     Active Substance: CERTOLIZUMAB PEGOL
     Indication: CROHN^S DISEASE
     Dosage: 400 MG, EV 4 WEEKS
     Dates: start: 20150824
  5. AVODART [Concomitant]
     Active Substance: DUTASTERIDE
     Indication: PROSTATOMEGALY
     Dosage: UNK
     Dates: start: 2015
  6. TAMSULOSIN [Concomitant]
     Active Substance: TAMSULOSIN
     Indication: PROSTATOMEGALY
     Dosage: 0.4 MG, 2X/DAY (BID)
     Route: 048
     Dates: start: 20150619

REACTIONS (1)
  - Cystitis [Recovered/Resolved]

NARRATIVE: CASE EVENT DATE: 20151028
